FAERS Safety Report 8346775-0 (Version None)
Quarter: 2012Q2

REPORT INFORMATION
  Report Type: 
  Country: None (occurrence: None)
  Receive Date: 20120507
  Receipt Date: 20120507
  Transmission Date: 20120825
  Serious: No
  Sender: FDA-Public Use
  Company Number: None

PATIENT
  Sex: Female
  Weight: 69.5 kg

DRUGS (1)
  1. COPAXONE [Suspect]
     Dosage: 20MG SQ QD
     Route: 058
     Dates: start: 20120301

REACTIONS (4)
  - ABDOMINAL DISTENSION [None]
  - DISCOMFORT [None]
  - GASTROINTESTINAL DISORDER [None]
  - FIBROSIS [None]
